FAERS Safety Report 26117217 (Version 1)
Quarter: 2025Q4

REPORT INFORMATION
  Report Type: Report from Study
  Country: US (occurrence: US)
  Receive Date: 20251203
  Receipt Date: 20251203
  Transmission Date: 20260118
  Serious: Yes (Disabling)
  Sender: ABBVIE
  Company Number: US-ABBVIE-6571186

PATIENT
  Sex: Female

DRUGS (1)
  1. ARMOUR THYROID [Suspect]
     Active Substance: THYROID, PORCINE
     Indication: Product used for unknown indication
     Route: 048

REACTIONS (1)
  - Intervertebral disc protrusion [Not Recovered/Not Resolved]
